FAERS Safety Report 8358069-8 (Version None)
Quarter: 2012Q2

REPORT INFORMATION
  Report Type: 
  Country: None (occurrence: None)
  Receive Date: 20120514
  Receipt Date: 20120507
  Transmission Date: 20120825
  Serious: Yes (Other)
  Sender: FDA-Public Use
  Company Number: US-ROCHE-1024527

PATIENT
  Sex: Male

DRUGS (2)
  1. ZELBORAF [Suspect]
     Indication: MALIGNANT MELANOMA
     Route: 048
     Dates: start: 20110211
  2. ZELBORAF [Suspect]
     Dates: start: 20120131, end: 20120306

REACTIONS (4)
  - OEDEMA PERIPHERAL [None]
  - ARTHRALGIA [None]
  - NEOPLASM [None]
  - FATIGUE [None]
